FAERS Safety Report 10085912 (Version 1)
Quarter: 2014Q2

REPORT INFORMATION
  Report Type: Spontaneous
  Country: None (occurrence: None)
  Receive Date: 20140416
  Receipt Date: 20140416
  Transmission Date: 20141212
  Serious: Yes (Death)
  Sender: FDA-Public Use
  Company Number: 07-AUR-01684

PATIENT
  Age: 69 Year
  Sex: Female
  Weight: 64.8 kg

DRUGS (7)
  1. CITALOPRAM [Suspect]
     Indication: MAJOR DEPRESSION
     Route: 048
     Dates: start: 200606
  2. AMISULPRIDE (AMISULPRIDE) [Concomitant]
  3. BENDROFLUMETHIAZIDE (BENDROFLUMETHIAZIDE) [Concomitant]
  4. BISOPROLOL (BISOPROLOL) [Concomitant]
  5. LISINOPRIL (LISINOPRIL) [Concomitant]
  6. PRIADEL (LITHIUM CARBONATE) [Concomitant]
  7. SIMVASTATIN (SIMVASTATIN) [Concomitant]

REACTIONS (8)
  - Scar [None]
  - Toxicity to various agents [None]
  - Benign neoplasm of thyroid gland [None]
  - Gastrointestinal disorder [None]
  - Intervertebral disc degeneration [None]
  - Skin abrasion [None]
  - Contusion [None]
  - Hypertensive heart disease [None]
